FAERS Safety Report 23229784 (Version 1)
Quarter: 2023Q4

REPORT INFORMATION
  Report Type: Spontaneous
  Country: US (occurrence: None)
  Receive Date: 20231127
  Receipt Date: 20231127
  Transmission Date: 20240110
  Serious: No
  Sender: FDA-Public Use
  Company Number: US-ROCHE-3212367

PATIENT
  Age: 84 Year
  Sex: Male
  Weight: 95.34 kg

DRUGS (2)
  1. LUCENTIS [Suspect]
     Active Substance: RANIBIZUMAB
     Indication: Neovascular age-related macular degeneration
     Dosage: RECEIVES AN INJECTION EVERY 6 TO 10 WEEKS
     Route: 050
     Dates: start: 2022
  2. AVASTIN [Suspect]
     Active Substance: BEVACIZUMAB
     Indication: Neovascular age-related macular degeneration
     Dosage: RECEIVES AN INJECTION EVERY 6 TO 10 WEEKS
     Route: 050
     Dates: start: 2021

REACTIONS (6)
  - Eye pain [Recovered/Resolved]
  - Eye pruritus [Not Recovered/Not Resolved]
  - Lacrimation increased [Not Recovered/Not Resolved]
  - Off label use [Unknown]
  - Visual impairment [Not Recovered/Not Resolved]
  - Visual impairment [Recovered/Resolved]

NARRATIVE: CASE EVENT DATE: 20210101
